FAERS Safety Report 6123753-3 (Version None)
Quarter: 2009Q1

REPORT INFORMATION
  Report Type: 
  Country: None (occurrence: None)
  Receive Date: 20090317
  Receipt Date: 20090305
  Transmission Date: 20090719
  Serious: Yes (Disabling)
  Sender: FDA-Public Use
  Company Number: 2009-192744-NL

PATIENT
  Age: 33 Year
  Sex: Female

DRUGS (3)
  1. ETONOGESTREL (BATCH #: 363112/390986) [Suspect]
     Indication: CONTRACEPTION
     Dosage: DF SUBCUTANEOUS
     Route: 058
     Dates: start: 20090128, end: 20090218
  2. BETAMETHASONE [Concomitant]
  3. IBUPROFEN [Concomitant]

REACTIONS (3)
  - CANDIDIASIS [None]
  - RASH PRURITIC [None]
  - VULVOVAGINAL PRURITUS [None]
